FAERS Safety Report 18959463 (Version 5)
Quarter: 2022Q4

REPORT INFORMATION
  Report Type: Spontaneous
  Country: JP (occurrence: JP)
  Receive Date: 20210302
  Receipt Date: 20221229
  Transmission Date: 20230112
  Serious: Yes (Death, Hospitalization)
  Sender: FDA-Public Use
  Company Number: JP-DSJP-DSJ-2021-105995

PATIENT
  Age: 77 Year
  Sex: Male
  Weight: 50 kg

DRUGS (3)
  1. ENHERTU [Suspect]
     Active Substance: FAM-TRASTUZUMAB DERUXTECAN-NXKI
     Indication: HER2 positive gastric cancer
     Dosage: 6.4 MG/KG, ONCE EVERY 3 WK
     Route: 041
     Dates: start: 20210203, end: 20210203
  2. UNSPECIFIED INGREDIENT [Concomitant]
     Active Substance: UNSPECIFIED INGREDIENT
     Dosage: UNK
     Route: 065
  3. 5-HT3 RECEPTOR ANTAGONIST [Concomitant]
     Dosage: UNK
     Route: 065

REACTIONS (3)
  - Pneumonia bacterial [Recovered/Resolved]
  - Disease progression [Fatal]
  - Malaise [Unknown]

NARRATIVE: CASE EVENT DATE: 20210201
